FAERS Safety Report 4296308-3 (Version None)
Quarter: 2004Q1

REPORT INFORMATION
  Report Type: 
  Country: None (occurrence: None)
  Receive Date: 20040217
  Receipt Date: 20031014
  Transmission Date: 20041129
  Serious: No
  Sender: FDA-Public Use
  Company Number: US-GLAXOSMITHKLINE-A0430263A

PATIENT
  Age: 31 Year
  Sex: Female

DRUGS (5)
  1. LAMICTAL [Suspect]
     Route: 048
     Dates: start: 20030911, end: 20031014
  2. DEPAKOTE [Concomitant]
  3. LITHIUM CARBONATE [Concomitant]
  4. WELLBUTRIN [Concomitant]
  5. EFFEXOR XR [Concomitant]

REACTIONS (1)
  - RASH [None]
